FAERS Safety Report 8261747-2 (Version None)
Quarter: 2012Q2

REPORT INFORMATION
  Report Type: 
  Country: None (occurrence: None)
  Receive Date: 20120405
  Receipt Date: 20120323
  Transmission Date: 20120825
  Serious: Yes (Other)
  Sender: FDA-Public Use
  Company Number: US-MYLANLABS-2012S1006772

PATIENT
  Sex: Female

DRUGS (1)
  1. ATENOLOL [Suspect]
     Indication: HEART RATE IRREGULAR

REACTIONS (5)
  - DEAFNESS UNILATERAL [None]
  - TINNITUS [None]
  - HEARING IMPAIRED [None]
  - OTOTOXICITY [None]
  - HEADACHE [None]
